FAERS Safety Report 8223083-X (Version None)
Quarter: 2012Q1

REPORT INFORMATION
  Report Type: 
  Country: None (occurrence: None)
  Receive Date: 20120321
  Receipt Date: 20120313
  Transmission Date: 20120608
  Serious: Yes (Hospitalization)
  Sender: FDA-Public Use
  Company Number: US-BIOGENIDEC-2012BI009570

PATIENT
  Age: 48 Year
  Sex: Female

DRUGS (2)
  1. AVONEX [Suspect]
     Route: 030
  2. AVONEX [Suspect]
     Indication: MULTIPLE SCLEROSIS
     Route: 030
     Dates: start: 20070510

REACTIONS (4)
  - INJECTION SITE INFLAMMATION [None]
  - INJECTION SITE ATROPHY [None]
  - INJECTION SITE HAEMATOMA [None]
  - MUSCULOSKELETAL DISORDER [None]
